FAERS Safety Report 16051045 (Version 1)
Quarter: 2019Q1

REPORT INFORMATION
  Report Type: Spontaneous
  Country: FR (occurrence: FR)
  Receive Date: 20190308
  Receipt Date: 20190308
  Transmission Date: 20190418
  Serious: Yes (Hospitalization)
  Sender: FDA-Public Use
  Company Number: PHHY2019FR047063

PATIENT
  Age: 14 Year
  Sex: Male

DRUGS (5)
  1. METHOTREXATE. [Interacting]
     Active Substance: METHOTREXATE
     Dosage: 5 G/M2, UNK
     Route: 065
  2. LEVETIRACETAM. [Interacting]
     Active Substance: LEVETIRACETAM
     Indication: THROMBOPHLEBITIS
     Dosage: UNK
     Route: 065
  3. LEVOFOLINATE [Concomitant]
     Active Substance: LEVOLEUCOVORIN CALCIUM
     Indication: PRODUCT USED FOR UNKNOWN INDICATION
     Route: 065
  4. METHOTREXATE. [Suspect]
     Active Substance: METHOTREXATE
     Indication: ACUTE LYMPHOCYTIC LEUKAEMIA
     Dosage: 5 INJECTIONS
     Route: 039
  5. GABAPENTIN. [Concomitant]
     Active Substance: GABAPENTIN
     Indication: THROMBOPHLEBITIS
     Route: 065

REACTIONS (18)
  - Dermatitis exfoliative generalised [Unknown]
  - Prothrombin time shortened [Unknown]
  - Toxicity to various agents [Unknown]
  - Thrombocytopenia [Unknown]
  - Cheilitis [Unknown]
  - Hyperfibrinogenaemia [Unknown]
  - Product use in unapproved indication [Unknown]
  - Gastroenteritis norovirus [Unknown]
  - Liver abscess [Unknown]
  - Cholestasis [Unknown]
  - Pruritus [Unknown]
  - Anal haemorrhage [Unknown]
  - Enteritis [Unknown]
  - Diarrhoea [Unknown]
  - Rectal ulcer [Unknown]
  - Folliculitis [Unknown]
  - Mucosal inflammation [Unknown]
  - Drug interaction [Unknown]
